FAERS Safety Report 9084819 (Version 2)
Quarter: 2013Q1

REPORT INFORMATION
  Report Type: Spontaneous
  Country: US (occurrence: US)
  Receive Date: 20130130
  Receipt Date: 20130322
  Transmission Date: 20140127
  Serious: No
  Sender: FDA-Public Use
  Company Number: PHEH2013US001978

PATIENT
  Sex: Male

DRUGS (3)
  1. TEGRETOL [Suspect]
     Dosage: UNK UKN, UNK
  2. FUROSEMIDE [Concomitant]
     Dosage: UNK UKN, UNK
  3. NSAID^S [Concomitant]
     Dosage: UNK UKN, UNK

REACTIONS (2)
  - Hepatic pain [Unknown]
  - Abdominal pain [Unknown]
